FAERS Safety Report 7055342-0 (Version None)
Quarter: 2010Q4

REPORT INFORMATION
  Report Type: 
  Country: None (occurrence: None)
  Receive Date: 20101021
  Receipt Date: 20101006
  Transmission Date: 20110411
  Serious: Yes (Other)
  Sender: FDA-Public Use
  Company Number: JP-PFIZER INC-2008101476

PATIENT
  Age: 32 Year
  Sex: Female
  Weight: 51 kg

DRUGS (12)
  1. PROVERA [Suspect]
     Indication: OFF LABEL USE
     Dosage: 2.5 MG, 1X/DAY
     Route: 048
     Dates: start: 20080422, end: 20080501
  2. PROVERA [Suspect]
     Indication: ANOVULATORY CYCLE
     Dosage: 2.5 MG, 1X/DAY
     Route: 048
     Dates: start: 20080520, end: 20080529
  3. PROVERA [Suspect]
     Indication: INFERTILITY
     Dosage: 2.5 MG, 1X/DAY
     Route: 048
     Dates: start: 20080617, end: 20080626
  4. PREMARIN [Suspect]
     Indication: ANOVULATORY CYCLE
     Dosage: 0.625 MG, 1X/DAY
     Route: 048
     Dates: start: 20080422, end: 20080714
  5. CLOMID [Concomitant]
     Indication: ANOVULATORY CYCLE
     Dosage: 50 MG, 1X/DAY
     Route: 048
     Dates: start: 20080803, end: 20080807
  6. CLOMID [Concomitant]
     Dosage: UNK
     Route: 048
     Dates: start: 20080902, end: 20080906
  7. CLOMID [Concomitant]
     Dosage: UNK
     Dates: start: 20081002, end: 20081006
  8. CLOMID [Concomitant]
     Dosage: UNK
     Dates: start: 20081101, end: 20081105
  9. NORLUTEN [Concomitant]
     Indication: ANOVULATORY CYCLE
     Dosage: 5 MG, 1X/DAY
     Route: 048
     Dates: start: 20080721, end: 20080727
  10. NORLUTEN [Concomitant]
     Dosage: UNK
     Dates: start: 20080820, end: 20080826
  11. NORLUTEN [Concomitant]
     Dosage: UNK
     Dates: start: 20080919, end: 20080925
  12. NORLUTEN [Concomitant]
     Dosage: UNK
     Dates: start: 20081019, end: 20081025

REACTIONS (2)
  - RETINAL ARTERY OCCLUSION [None]
  - RETINAL VEIN OCCLUSION [None]
